FAERS Safety Report 9975637 (Version 1)
Quarter: 2014Q1

REPORT INFORMATION
  Report Type: Report from Study
  Country: US (occurrence: US)
  Receive Date: 20140306
  Receipt Date: 20140306
  Transmission Date: 20141002
  Serious: No
  Sender: FDA-Public Use
  Company Number: US-ABBVIE-13P-163-1159690-00

PATIENT
  Sex: Male
  Weight: 96.25 kg

DRUGS (6)
  1. HUMIRA [Suspect]
     Indication: PSORIATIC ARTHROPATHY
     Route: 058
     Dates: start: 2009, end: 2012
  2. HUMIRA [Suspect]
     Route: 058
     Dates: start: 2012, end: 2012
  3. HUMIRA [Suspect]
     Route: 058
     Dates: start: 2012
  4. UNKNOWN [Concomitant]
     Indication: HYPERTENSION
  5. UNKNOWN [Concomitant]
     Indication: BLOOD CHOLESTEROL INCREASED
  6. UNKNOWN [Concomitant]
     Indication: DIABETES MELLITUS

REACTIONS (1)
  - Psoriatic arthropathy [Recovered/Resolved]
